FAERS Safety Report 4531344-0 (Version None)
Quarter: 2004Q4

REPORT INFORMATION
  Report Type: 
  Country: None (occurrence: None)
  Receive Date: 20041206
  Receipt Date: 20041108
  Transmission Date: 20050328
  Serious: No
  Sender: FDA-Public Use
  Company Number: USA040978302

PATIENT
  Age: 55 Year
  Sex: Female

DRUGS (5)
  1. CYMBALTA [Suspect]
     Indication: DEPRESSION
     Dosage: 60 MG/1 DAY
     Dates: start: 20040901
  2. LEXAPRO [Concomitant]
  3. LASIX [Concomitant]
  4. HORMONE REPLACEMENT THERAPY [Concomitant]
  5. WELLBUTRIN [Concomitant]

REACTIONS (2)
  - CONSTIPATION [None]
  - URINARY HESITATION [None]
